FAERS Safety Report 5077648-7 (Version None)
Quarter: 2006Q3

REPORT INFORMATION
  Report Type: 
  Country: None (occurrence: None)
  Receive Date: 20060807
  Receipt Date: 20060720
  Transmission Date: 20061208
  Serious: Yes (Other)
  Sender: FDA-Public Use
  Company Number: US200607003826

PATIENT
  Sex: Female

DRUGS (2)
  1. HUMULIN R [Suspect]
     Indication: DIABETES MELLITUS
     Dosage: 20 U 2/D
  2. HUMULIN R [Suspect]
     Indication: DIABETES MELLITUS
     Dosage: 20 U DAILY (1/D)

REACTIONS (4)
  - JOINT INJURY [None]
  - ROAD TRAFFIC ACCIDENT [None]
  - ROTATOR CUFF SYNDROME [None]
  - TOOTH INJURY [None]
